FAERS Safety Report 14817145 (Version 3)
Quarter: 2018Q2

REPORT INFORMATION
  Report Type: Spontaneous
  Country: CA (occurrence: CA)
  Receive Date: 20180426
  Receipt Date: 20180510
  Transmission Date: 20180711
  Serious: Yes (Hospitalization, Other)
  Sender: FDA-Public Use
  Company Number: CA-BEH-2018090110

PATIENT
  Age: 76 Year
  Sex: Male

DRUGS (12)
  1. PRIVIGEN [Suspect]
     Active Substance: HUMAN IMMUNOGLOBULIN G
     Dosage: 200 ML, TOT
     Route: 065
     Dates: start: 20180420, end: 20180420
  2. VITAMIN D3 [Concomitant]
     Active Substance: CHOLECALCIFEROL
     Route: 065
  3. SYNTHROID [Concomitant]
     Active Substance: LEVOTHYROXINE SODIUM
     Route: 065
  4. GLICLAZIDE [Concomitant]
     Active Substance: GLICLAZIDE
     Route: 065
  5. PANTOPRAZOLE [Concomitant]
     Active Substance: PANTOPRAZOLE
     Route: 065
  6. PLAVIX [Concomitant]
     Active Substance: CLOPIDOGREL BISULFATE
     Route: 065
  7. LITHIUM. [Concomitant]
     Active Substance: LITHIUM
     Route: 065
  8. PRIVIGEN [Suspect]
     Active Substance: HUMAN IMMUNOGLOBULIN G
     Indication: MULTIFOCAL MOTOR NEUROPATHY
     Dosage: 350 ML, TOT
     Route: 065
     Dates: start: 20180420, end: 20180420
  9. BUPROPION. [Concomitant]
     Active Substance: BUPROPION
     Route: 065
  10. VENLAFAXINE [Concomitant]
     Active Substance: VENLAFAXINE HYDROCHLORIDE
     Route: 065
  11. ALPRAZOLAM. [Concomitant]
     Active Substance: ALPRAZOLAM
     Route: 065
  12. DUTASTERIDE. [Concomitant]
     Active Substance: DUTASTERIDE
     Route: 065

REACTIONS (8)
  - Muscle spasticity [Unknown]
  - Somnolence [Recovered/Resolved]
  - Asthenia [Unknown]
  - Pupillary reflex impaired [Recovered/Resolved]
  - Hypotension [Recovered/Resolved]
  - Loss of consciousness [Recovered/Resolved]
  - Unresponsive to stimuli [Recovered/Resolved]
  - Labile blood pressure [Recovered/Resolved]

NARRATIVE: CASE EVENT DATE: 20180420
